FAERS Safety Report 5770589-9 (Version None)
Quarter: 2008Q2

REPORT INFORMATION
  Report Type: 
  Country: None (occurrence: None)
  Receive Date: 20080613
  Receipt Date: 20080505
  Transmission Date: 20081010
  Serious: No
  Sender: FDA-Public Use
  Company Number: US-ABBOTT-08P-163-0450793-00

PATIENT
  Sex: Male
  Weight: 99.09 kg

DRUGS (3)
  1. HUMIRA [Suspect]
     Indication: RHEUMATOID ARTHRITIS
     Route: 058
     Dates: start: 20070901
  2. HUMIRA [Suspect]
     Dosage: PFS
     Dates: start: 20060101, end: 20070901
  3. METHOTREXATE [Concomitant]
     Indication: RHEUMATOID ARTHRITIS
     Dosage: FIVE 2.5 MG TABLETS ONCE A WEEK
     Route: 048
     Dates: start: 20030101

REACTIONS (3)
  - NODULE [None]
  - PAIN [None]
  - SWELLING [None]
